FAERS Safety Report 15809137 (Version 5)
Quarter: 2020Q3

REPORT INFORMATION
  Report Type: Report from Study
  Country: US (occurrence: US)
  Receive Date: 20190110
  Receipt Date: 20200804
  Transmission Date: 20201102
  Serious: Yes (Hospitalization)
  Sender: FDA-Public Use
  Company Number: US-ACTELION-A-NJ2019-184699

PATIENT
  Sex: Female
  Weight: 75.28 kg

DRUGS (1)
  1. OPSUMIT [Suspect]
     Active Substance: MACITENTAN
     Indication: PULMONARY ARTERIAL HYPERTENSION
     Dosage: 10 MG, QD
     Route: 048

REACTIONS (6)
  - Lower limb fracture [Unknown]
  - Dyspnoea [Unknown]
  - Feeling abnormal [Unknown]
  - Pneumonia [Unknown]
  - Dyspnoea exertional [Unknown]
  - Fall [Unknown]
